FAERS Safety Report 4347466-3 (Version None)
Quarter: 2004Q2

REPORT INFORMATION
  Report Type: 
  Country: None (occurrence: None)
  Receive Date: 20040422
  Receipt Date: 20040406
  Transmission Date: 20050107
  Serious: Yes (Other)
  Sender: FDA-Public Use
  Company Number: US_0404102150

PATIENT
  Age: 11 Year
  Sex: Male
  Weight: 57 kg

DRUGS (2)
  1. INSULIN [Suspect]
     Dosage: 4 U DAY
     Dates: start: 29960101
  2. HUMULIN-HUMAN ULTRALENTE INSULIN (RDNA) (HUMAN NISU [Suspect]

REACTIONS (7)
  - BLOOD GLUCOSE INCREASED [None]
  - CONVULSION [None]
  - DRUG HYPERSENSITIVITY [None]
  - DRUG INEFFECTIVE [None]
  - FEELING ABNORMAL [None]
  - OEDEMA [None]
  - WEIGHT DECREASED [None]
